FAERS Safety Report 5637228-9 (Version None)
Quarter: 2008Q1

REPORT INFORMATION
  Report Type: 
  Country: None (occurrence: None)
  Receive Date: 20080225
  Receipt Date: 20070110
  Transmission Date: 20080703
  Serious: No
  Sender: FDA-Public Use
  Company Number: US-BRISTOL-MYERS SQUIBB COMPANY-13637723

PATIENT
  Age: 45 Year
  Sex: Male

DRUGS (4)
  1. KENALOG [Suspect]
     Indication: DERMATITIS CONTACT
     Dates: start: 20060901
  2. MULTI-VITAMIN [Concomitant]
  3. VITAMIN A [Concomitant]
  4. GARLIC [Concomitant]

REACTIONS (1)
  - RASH [None]
